FAERS Safety Report 21311776 (Version 1)
Quarter: 2022Q3

REPORT INFORMATION
  Report Type: Spontaneous
  Country: US (occurrence: None)
  Receive Date: 20220909
  Receipt Date: 20220909
  Transmission Date: 20221027
  Serious: No
  Sender: FDA-Public Use
  Company Number: US-ARIS GLOBAL-202203-0434

PATIENT
  Sex: Male

DRUGS (23)
  1. OXERVATE [Suspect]
     Active Substance: CENEGERMIN-BKBJ
     Indication: Neurotrophic keratopathy
     Route: 047
     Dates: start: 20220325, end: 202205
  2. ZETIA [Concomitant]
     Active Substance: EZETIMIBE
  3. XARELTO [Concomitant]
     Active Substance: RIVAROXABAN
  4. VITAMIN B12 [Concomitant]
     Active Substance: CYANOCOBALAMIN
  5. VITAMIN B COMPLEX [Concomitant]
     Active Substance: CYANOCOBALAMIN\DEXPANTHENOL\NIACINAMIDE\PYRIDOXINE HYDROCHLORIDE\RIBOFLAVIN 5^-PHOSPHATE SODIUM\THIA
  6. TYLENOL [Concomitant]
     Active Substance: ACETAMINOPHEN
  7. TAMSULOSIN HYDROCHLORIDE [Concomitant]
     Active Substance: TAMSULOSIN HYDROCHLORIDE
  8. OMEPRAZOLE [Concomitant]
     Active Substance: OMEPRAZOLE
     Dosage: DELAYED RELEASE
  9. MOXIFLOXACIN [Concomitant]
     Active Substance: MOXIFLOXACIN
  10. LYRICA [Concomitant]
     Active Substance: PREGABALIN
  11. LINZESS [Concomitant]
     Active Substance: LINACLOTIDE
  12. JANUVIA [Concomitant]
     Active Substance: SITAGLIPTIN PHOSPHATE
  13. HYDRALAZINE HCL [Concomitant]
     Active Substance: HYDRALAZINE HYDROCHLORIDE
  14. GLUCOSAMINE-CHONDROITIN-MSM [Concomitant]
  15. FUROSEMIDE [Concomitant]
     Active Substance: FUROSEMIDE
  16. FINASTERIDE [Concomitant]
     Active Substance: FINASTERIDE
  17. ERYTHROMYCIN [Concomitant]
     Active Substance: ERYTHROMYCIN
  18. DULOXETINE HYDROCHLORIDE [Concomitant]
     Active Substance: DULOXETINE HYDROCHLORIDE
     Dosage: DELAYED RELEASE
  19. COLACE [Concomitant]
     Active Substance: DOCUSATE SODIUM
  20. CARVEDILOL [Concomitant]
     Active Substance: CARVEDILOL
  21. ASPIRIN [Concomitant]
     Active Substance: ASPIRIN
  22. AMBIEN [Concomitant]
     Active Substance: ZOLPIDEM TARTRATE
  23. SERUM TEARS [Concomitant]

REACTIONS (5)
  - Eye pain [Not Recovered/Not Resolved]
  - Vision blurred [Not Recovered/Not Resolved]
  - Oropharyngeal pain [Not Recovered/Not Resolved]
  - Dyspnoea [Unknown]
  - Product administration error [Unknown]
